FAERS Safety Report 9844989 (Version 1)
Quarter: 2014Q1

REPORT INFORMATION
  Report Type: Spontaneous
  Country: US (occurrence: None)
  Receive Date: 20140122
  Receipt Date: 20140122
  Transmission Date: 20141002
  Serious: Yes (Death)
  Sender: FDA-Public Use
  Company Number: UTC-043242

PATIENT
  Sex: Male

DRUGS (3)
  1. REMODULIN (INJECTION FOR INFUSION) (TREPROSTINIL SODIUM) [Suspect]
     Indication: PULMONARY HYPERTENSION
  2. SILDENAFIL [Concomitant]
  3. BOSENTAN [Concomitant]

REACTIONS (2)
  - Respiratory failure [None]
  - Pulmonary hypertension [None]
